FAERS Safety Report 13382095 (Version 2)
Quarter: 2017Q2

REPORT INFORMATION
  Report Type: Report from Study
  Country: JP (occurrence: JP)
  Receive Date: 20170329
  Receipt Date: 20170419
  Transmission Date: 20170830
  Serious: Yes (Other)
  Sender: FDA-Public Use
  Company Number: PHJP2017JP009718

PATIENT
  Sex: Male
  Weight: 85 kg

DRUGS (1)
  1. PAZOPANIB [Suspect]
     Active Substance: PAZOPANIB
     Indication: RENAL CELL CARCINOMA STAGE I
     Dosage: 800 MG, QD
     Route: 048
     Dates: start: 20160229, end: 20160706

REACTIONS (4)
  - Diarrhoea [Recovering/Resolving]
  - Malaise [Recovered/Resolved]
  - Haematochezia [Recovering/Resolving]
  - Enterocolitis [Recovered/Resolved]

NARRATIVE: CASE EVENT DATE: 20160229
